FAERS Safety Report 5832334-8 (Version None)
Quarter: 2008Q3

REPORT INFORMATION
  Report Type: 
  Country: None (occurrence: None)
  Receive Date: 20080804
  Receipt Date: 20080721
  Transmission Date: 20090109
  Serious: Yes (Hospitalization)
  Sender: FDA-Public Use
  Company Number: B0531093A

PATIENT
  Age: 55 Year
  Sex: Female

DRUGS (2)
  1. PROPRANOLOL [Suspect]
     Indication: HEPATIC CIRRHOSIS
     Route: 065
  2. VENLAFAXINE HCL [Suspect]
     Indication: HEPATIC CIRRHOSIS
     Route: 065

REACTIONS (5)
  - ACUTE RESPIRATORY FAILURE [None]
  - DRUG INTERACTION [None]
  - PNEUMONIA MYCOPLASMAL [None]
  - PNEUMONITIS [None]
  - PULMONARY TOXICITY [None]
